FAERS Safety Report 5770348-7 (Version None)
Quarter: 2008Q2

REPORT INFORMATION
  Report Type: 
  Country: None (occurrence: None)
  Receive Date: 20080613
  Receipt Date: 20080428
  Transmission Date: 20081010
  Serious: No
  Sender: FDA-Public Use
  Company Number: US-ABBOTT-08P-163-0449276-00

PATIENT
  Sex: Female

DRUGS (5)
  1. HUMIRA [Suspect]
     Indication: CROHN'S DISEASE
     Route: 058
     Dates: start: 20080326, end: 20080326
  2. HUMIRA [Suspect]
     Route: 058
  3. HUMIRA [Suspect]
     Route: 058
     Dates: start: 20080501
  4. PREDNISONE TAB [Suspect]
     Indication: CROHN'S DISEASE
  5. INFLIXIMAB [Suspect]
     Indication: CROHN'S DISEASE

REACTIONS (3)
  - DRUG DOSE OMISSION [None]
  - GINGIVAL BLEEDING [None]
  - GINGIVITIS [None]
